FAERS Safety Report 7594211-4 (Version None)
Quarter: 2011Q3

REPORT INFORMATION
  Report Type: 
  Country: None (occurrence: None)
  Receive Date: 20110706
  Receipt Date: 20110624
  Transmission Date: 20111222
  Serious: Yes (Other)
  Sender: FDA-Public Use
  Company Number: US-B.I. PHARMACEUTICALS,INC./RIDGEFIELD-2011-BP-16369BP

PATIENT
  Age: 64 Year
  Sex: Female

DRUGS (2)
  1. PRADAXA [Suspect]
     Indication: ATRIAL FIBRILLATION
     Dosage: 300 MG
     Route: 048
     Dates: start: 20101101, end: 20110201
  2. PRADAXA [Suspect]
     Dosage: 300 MG
     Route: 048
     Dates: start: 20110619, end: 20110624

REACTIONS (5)
  - GASTROINTESTINAL PAIN [None]
  - ABDOMINAL DISTENSION [None]
  - CARDIAC ABLATION [None]
  - FLATULENCE [None]
  - DERMATITIS DIAPER [None]
